FAERS Safety Report 12851932 (Version 2)
Quarter: 2016Q4

REPORT INFORMATION
  Report Type: Spontaneous
  Country: US (occurrence: US)
  Receive Date: 20161017
  Receipt Date: 20161123
  Transmission Date: 20170207
  Serious: No
  Sender: FDA-Public Use
  Company Number: US-VIIV HEALTHCARE LIMITED-US2016150952

PATIENT
  Sex: Female
  Weight: 118.82 kg

DRUGS (4)
  1. TIVICAY [Suspect]
     Active Substance: DOLUTEGRAVIR SODIUM
     Indication: HIV INFECTION
     Dosage: 50 MG, QD
     Route: 048
     Dates: start: 201508, end: 20160512
  2. RILPIVIRINE TABLET [Suspect]
     Active Substance: RILPIVIRINE
     Indication: PRODUCT USED FOR UNKNOWN INDICATION
     Dosage: UNK
     Dates: start: 201508, end: 20160512
  3. RILPIVIRINE TABLET [Suspect]
     Active Substance: RILPIVIRINE
     Dosage: UNK
     Dates: start: 20160728
  4. TIVICAY [Suspect]
     Active Substance: DOLUTEGRAVIR SODIUM
     Dosage: 50 MG, QD
     Route: 048
     Dates: start: 20160728, end: 20161012

REACTIONS (1)
  - Alopecia [Not Recovered/Not Resolved]
